FAERS Safety Report 17740032 (Version 1)
Quarter: 2020Q2

REPORT INFORMATION
  Report Type: Spontaneous
  Country: US (occurrence: US)
  Receive Date: 20200503
  Receipt Date: 20200503
  Transmission Date: 20200714
  Serious: Yes (Hospitalization)
  Sender: FDA-Public Use
  Company Number: None

PATIENT
  Age: 6 Month
  Sex: Female
  Weight: 6.64 kg

DRUGS (3)
  1. PRENATAL VITAMINS (CITRANATAL) [Concomitant]
  2. OSELTAMIVIR PHOSPHATE FOR ORAL SUSPENSION 6 MG/ML* NDC 47781-384-26 [Suspect]
     Active Substance: OSELTAMIVIR PHOSPHATE
     Indication: INFLUENZA A VIRUS TEST POSITIVE
     Route: 048
     Dates: start: 20190216, end: 20190217
  3. INFANTS MOTRIN [Concomitant]
     Active Substance: IBUPROFEN

REACTIONS (24)
  - Heart rate increased [None]
  - Laboratory test abnormal [None]
  - Toxicity to various agents [None]
  - Developmental regression [None]
  - Consciousness fluctuating [None]
  - Rhinorrhoea [None]
  - Hypothermia [None]
  - Red blood cells urine [None]
  - Cells in urine [None]
  - Cardiac disorder [None]
  - Liver injury [None]
  - Speech disorder [None]
  - Lethargy [None]
  - Renal disorder [None]
  - Peripheral coldness [None]
  - Dehydration [None]
  - Blood lactic acid increased [None]
  - Somnolence [None]
  - Diarrhoea [None]
  - Skin discolouration [None]
  - Respiratory rate increased [None]
  - Lymphadenopathy [None]
  - Decreased appetite [None]
  - White blood cells urine positive [None]

NARRATIVE: CASE EVENT DATE: 20190217
